FAERS Safety Report 23709547 (Version 1)
Quarter: 2024Q2

REPORT INFORMATION
  Report Type: Spontaneous
  Country: CN (occurrence: CN)
  Receive Date: 20240404
  Receipt Date: 20240404
  Transmission Date: 20240716
  Serious: Yes (Hospitalization, Other)
  Sender: FDA-Public Use
  Company Number: CN-STRIDES ARCOLAB LIMITED-2024SP003874

PATIENT
  Age: 57 Year
  Sex: Female

DRUGS (5)
  1. PREDNISOLONE [Suspect]
     Active Substance: PREDNISOLONE
     Indication: Glomerulonephritis membranoproliferative
     Dosage: 60 MILLIGRAM, QD (PER DAY)
     Route: 065
  2. PREDNISOLONE [Suspect]
     Active Substance: PREDNISOLONE
     Dosage: REDUCED TO 20 MILLIGRAM, QD (PER DAY)
     Route: 065
  3. PREDNISOLONE [Suspect]
     Active Substance: PREDNISOLONE
     Dosage: REDUCED TO 15 MILLIGRAM, QD (PER DAY)
     Route: 065
  4. CYCLOPHOSPHAMIDE [Suspect]
     Active Substance: CYCLOPHOSPHAMIDE
     Indication: Glomerulonephritis membranoproliferative
     Dosage: 100MG QD(PER DAY)
     Route: 065
  5. CYCLOPHOSPHAMIDE [Suspect]
     Active Substance: CYCLOPHOSPHAMIDE
     Dosage: UNK (INITIATED AT LOW DOSE)
     Route: 065

REACTIONS (3)
  - Therapy partial responder [Unknown]
  - COVID-19 [Recovered/Resolved]
  - Meningitis cryptococcal [Recovered/Resolved]
